FAERS Safety Report 9579663 (Version 3)
Quarter: 2013Q4

REPORT INFORMATION
  Report Type: Spontaneous
  Country: SE (occurrence: SE)
  Receive Date: 20131002
  Receipt Date: 20131121
  Transmission Date: 20140711
  Serious: Yes (Hospitalization, Other)
  Sender: FDA-Public Use
  Company Number: SE-BIOGENIDEC-2013BI092954

PATIENT
  Sex: Female

DRUGS (5)
  1. TYSABRI [Suspect]
     Indication: MULTIPLE SCLEROSIS
     Route: 042
     Dates: start: 20110711
  2. MULTIVITAMIN [Concomitant]
  3. CALCICHEW [Concomitant]
  4. TOVIAZ [Concomitant]
  5. BEHEPAN [Concomitant]

REACTIONS (3)
  - Overweight [Not Recovered/Not Resolved]
  - Nervous system disorder [Unknown]
  - Cognitive disorder [Unknown]
